FAERS Safety Report 7364597-4 (Version None)
Quarter: 2011Q1

REPORT INFORMATION
  Report Type: 
  Country: None (occurrence: None)
  Receive Date: 20110321
  Receipt Date: 20110316
  Transmission Date: 20110831
  Serious: Yes (Death, Hospitalization)
  Sender: FDA-Public Use
  Company Number: PHHY2011BR21745

PATIENT
  Age: 74 Year
  Sex: Female

DRUGS (5)
  1. VITAMIN K TAB [Concomitant]
  2. WARFARIN SODIUM [Suspect]
     Dosage: 15 MG, UNK
  3. HEPARIN [Suspect]
  4. WARFARIN SODIUM [Suspect]
     Dosage: 10 MG, UNK
  5. WARFARIN SODIUM [Suspect]
     Dosage: 5 MG, UNK

REACTIONS (12)
  - MULTI-ORGAN FAILURE [None]
  - RASH [None]
  - SEPTIC SHOCK [None]
  - SKIN NECROSIS [None]
  - OEDEMA [None]
  - RENAL FAILURE ACUTE [None]
  - CARDIOPULMONARY FAILURE [None]
  - SKIN EXFOLIATION [None]
  - PULSE ABSENT [None]
  - HEPARIN-INDUCED THROMBOCYTOPENIA [None]
  - ERYTHEMA [None]
  - SKIN LESION [None]
